FAERS Safety Report 18052582 (Version 2)
Quarter: 2020Q3

REPORT INFORMATION
  Report Type: Spontaneous
  Country: IT (occurrence: IT)
  Receive Date: 20200721
  Receipt Date: 20200723
  Transmission Date: 20201103
  Serious: Yes (Other)
  Sender: FDA-Public Use
  Company Number: NVSC2020IT204851

PATIENT
  Age: 37 Year
  Sex: Female

DRUGS (2)
  1. MYCOPHENOLIC ACID. [Concomitant]
     Active Substance: MYCOPHENOLIC ACID
     Indication: RENAL TRANSPLANT
     Dosage: UNK
     Route: 065
  2. TACROLIMUS. [Suspect]
     Active Substance: TACROLIMUS
     Indication: RENAL TRANSPLANT
     Dosage: UNK
     Route: 065

REACTIONS (9)
  - Acute kidney injury [Recovered/Resolved]
  - Nephropathy toxic [Unknown]
  - Alveolitis [Recovered/Resolved]
  - Paraplegia [Recovered/Resolved]
  - Cerebrovascular disorder [Recovered/Resolved]
  - Neurological symptom [Unknown]
  - Toxicity to various agents [Recovered/Resolved]
  - Peripheral sensory neuropathy [Recovered/Resolved]
  - Myalgia [Recovered/Resolved]
